FAERS Safety Report 22532959 (Version 1)
Quarter: 2023Q2

REPORT INFORMATION
  Report Type: Spontaneous
  Country: US (occurrence: US)
  Receive Date: 20230607
  Receipt Date: 20230607
  Transmission Date: 20230722
  Serious: No
  Sender: FDA-Public Use
  Company Number: US-GALDERMA-US2023007695

PATIENT

DRUGS (6)
  1. PROACTIV MD ADAPALENE ACNE TREATMENT [Suspect]
     Active Substance: ADAPALENE
     Indication: Acne
     Dosage: 1 DOSAGE FORM, PEA SIZE
     Route: 061
     Dates: start: 202301, end: 202304
  2. Proactiv MD Ultra Gentle Cleanser [Concomitant]
     Indication: Acne
     Dosage: 1 DOSAGE FORM, BID, 2 OR MORE TIMES A WEEK, PEA SIZE
     Route: 061
     Dates: start: 202301, end: 202304
  3. Proactiv MD Ultra Hydrating Moisturizer [Concomitant]
     Indication: Acne
     Dosage: 1 DOSAGE FORM, BID, 2 OR MORE TIMES A WEEK, PEA SIZE
     Route: 061
     Dates: start: 202301, end: 202304
  4. PROACTIV CLEAR SKIN SPF 30 [Concomitant]
     Active Substance: AVOBENZONE\OCTISALATE\OCTOCRYLENE
     Indication: Acne
     Dosage: 1 DOSAGE FORM, BID, 2 OR MORE TIMES A WEEK, PEA SIZE
     Route: 061
     Dates: start: 202301, end: 202304
  5. PROACTIV ACNE BODY WASH [Concomitant]
     Active Substance: SALICYLIC ACID
     Indication: Acne
     Dosage: 1 DOSAGE FORM, BID, 2 OR MORE TIMES A WEEK, PEA SIZE
     Route: 061
     Dates: start: 202301, end: 202304
  6. PROACTIV BLACKHEAD DISSOLVING [Concomitant]
     Active Substance: SALICYLIC ACID
     Indication: Acne
     Dosage: 1 DOSAGE FORM, BID, 2 OR MORE TIMES A WEEK, PEA SIZE
     Route: 061
     Dates: start: 202301, end: 202304

REACTIONS (2)
  - Erythema [Recovered/Resolved]
  - Skin irritation [Recovered/Resolved]

NARRATIVE: CASE EVENT DATE: 20230101
